FAERS Safety Report 6357987-X (Version None)
Quarter: 2009Q3

REPORT INFORMATION
  Report Type: 
  Country: None (occurrence: None)
  Receive Date: 20090916
  Receipt Date: 20090903
  Transmission Date: 20100115
  Serious: Yes (Life-Threatening, Disabling)
  Sender: FDA-Public Use
  Company Number: JP-PFIZER INC-2009265135

PATIENT
  Age: 56 Year

DRUGS (9)
  1. SUNITINIB MALATE [Suspect]
     Indication: METASTATIC RENAL CELL CARCINOMA
     Dosage: 37.5 MG, 1X/DAY
     Route: 048
     Dates: start: 20090623
  2. NOVORAPID [Concomitant]
     Route: 058
  3. LOXONIN [Concomitant]
     Route: 048
  4. GASTER [Concomitant]
     Route: 048
  5. LASIX [Concomitant]
     Route: 048
  6. URINORM [Concomitant]
     Route: 048
  7. URALYT-U [Concomitant]
     Route: 048
  8. ADALAT CC [Concomitant]
     Route: 048
  9. MAG-LAX [Concomitant]
     Route: 048

REACTIONS (3)
  - HEPATIC FUNCTION ABNORMAL [None]
  - PLATELET COUNT DECREASED [None]
  - RENAL IMPAIRMENT [None]
